FAERS Safety Report 14874769 (Version 15)
Quarter: 2020Q4

REPORT INFORMATION
  Report Type: Spontaneous
  Country: DE (occurrence: DE)
  Receive Date: 20180510
  Receipt Date: 20201217
  Transmission Date: 20210113
  Serious: Yes (Hospitalization)
  Sender: FDA-Public Use
  Company Number: DE-009507513-1805DEU000169

PATIENT
  Age: 62 Year
  Sex: Female
  Weight: 45 kg

DRUGS (84)
  1. MAGNESIUM VERLA (MAGNESIUM CITRATE (+) MAGNESIUM GLUTAMATE (+) MAGNESI [Suspect]
     Active Substance: MAGNESIUM
     Dosage: UNK UNK, BID
     Route: 048
  2. SPIRONOLACTONE. [Suspect]
     Active Substance: SPIRONOLACTONE
     Indication: PRODUCT USED FOR UNKNOWN INDICATION
     Dosage: 200 MG, BID
     Route: 048
  3. VIGANTOLETTEN [Suspect]
     Active Substance: CHOLECALCIFEROL
     Indication: PRODUCT USED FOR UNKNOWN INDICATION
     Dosage: 1 DF, QD
     Route: 048
  4. KALINOR (POTASSIUM BICARBONATE\POTASSIUM CITRATE) [Suspect]
     Active Substance: POTASSIUM BICARBONATE\POTASSIUM CITRATE
     Dosage: 100 MG, QD (1-0-0-0)
     Route: 048
  5. ACETAMINOPHEN (+) PENTAZOCINE HYDROCHLORIDE [Suspect]
     Active Substance: ACETAMINOPHEN\PENTAZOCINE HYDROCHLORIDE
     Indication: PRODUCT USED FOR UNKNOWN INDICATION
     Dosage: 90 DOSAGE FORM, QD
     Route: 048
  6. MAGNESIUM CITRATE (+) MAGNESIUM GLUTAMATE (+) MAGNESIUM NICOTINATE [Suspect]
     Active Substance: MAGNESIUM
     Indication: PRODUCT USED FOR UNKNOWN INDICATION
     Dosage: 2 DF, QD
     Route: 048
  7. SIMVASTATIN. [Suspect]
     Active Substance: SIMVASTATIN
     Indication: PRODUCT USED FOR UNKNOWN INDICATION
     Dosage: 40 MG, QD (0-0-1-0)
     Route: 048
  8. FUROSEMIDE. [Interacting]
     Active Substance: FUROSEMIDE
     Dosage: 40 MG, QD
     Route: 048
  9. POTASSIUM CHLORIDE. [Suspect]
     Active Substance: POTASSIUM CHLORIDE
     Indication: PRODUCT USED FOR UNKNOWN INDICATION
     Dosage: 100 MG, QD
     Route: 048
  10. NOVALGIN (ACETAMINOPHEN (+) CAFFEINE (+) PROPYPHENAZONE) [Suspect]
     Active Substance: ACETAMINOPHEN\CAFFEINE\PROPYPHENAZONE
     Dosage: 30 GTT, TID (30 TROPFEN, 1-1-1-0) (ALSO REPORTED AS 90 GTT, QD)
     Route: 048
  11. ESIDRIX [Suspect]
     Active Substance: HYDROCHLOROTHIAZIDE
     Indication: PRODUCT USED FOR UNKNOWN INDICATION
     Dosage: 25 MG, QD (1-0-0-0)
     Route: 048
  12. ACETAMINOPHEN (+) PENTAZOCINE HYDROCHLORIDE [Suspect]
     Active Substance: ACETAMINOPHEN\PENTAZOCINE HYDROCHLORIDE
     Dosage: 30 GTT DROPS, TID
     Route: 048
  13. VIANI [Suspect]
     Active Substance: FLUTICASONE PROPIONATE\SALMETEROL XINAFOATE
     Indication: PRODUCT USED FOR UNKNOWN INDICATION
     Dosage: 2 DF, QD
     Route: 055
  14. CHOLECALCIFEROL [Suspect]
     Active Substance: CHOLECALCIFEROL
     Indication: PRODUCT USED FOR UNKNOWN INDICATION
     Dosage: 100 IU, QD
     Route: 048
  15. EZETIMIBE. [Suspect]
     Active Substance: EZETIMIBE
     Indication: PRODUCT USED FOR UNKNOWN INDICATION
     Dosage: 10 MG, QD
     Route: 048
  16. LACTULOSE. [Interacting]
     Active Substance: LACTULOSE
     Indication: PRODUCT USED FOR UNKNOWN INDICATION
     Dosage: 1 DF, QD, 1 MEASURING CUP
     Route: 048
  17. MUCOSOLVAN [Interacting]
     Active Substance: AMBROXOL HYDROCHLORIDE
     Indication: PRODUCT USED FOR UNKNOWN INDICATION
     Dosage: 30 GTT DROPS, PRN ; AS NECESSARY
     Route: 048
  18. MAGNESIUM VERLA (MAGNESIUM CITRATE (+) MAGNESIUM GLUTAMATE (+) MAGNESI [Suspect]
     Active Substance: MAGNESIUM
     Indication: PRODUCT USED FOR UNKNOWN INDICATION
     Dosage: 2 DF, QD (2-0-0-0)
     Route: 048
  19. MAGNESIUM VERLA (MAGNESIUM CITRATE (+) MAGNESIUM GLUTAMATE (+) MAGNESI [Suspect]
     Active Substance: MAGNESIUM
     Dosage: 2 DF, QD
     Route: 048
  20. SPIRONOLACTONE. [Suspect]
     Active Substance: SPIRONOLACTONE
     Dosage: 200 MG, BID
     Route: 048
  21. SPIRONOLACTONE. [Suspect]
     Active Substance: SPIRONOLACTONE
     Dosage: 200 MG, BID
     Route: 048
  22. SPIRONOLACTONE. [Suspect]
     Active Substance: SPIRONOLACTONE
     Dosage: 100 MG, BID (2-0-0-0) (ALSO REPORTED AS 200 MG, QD)
     Route: 048
  23. FUROSEMIDE. [Interacting]
     Active Substance: FUROSEMIDE
     Dosage: 40 MG, QID
     Route: 048
  24. MAGNESIUM (UNSPECIFIED) [Suspect]
     Active Substance: MAGNESIUM
     Indication: PRODUCT USED FOR UNKNOWN INDICATION
     Dosage: 2 DOSAGE FORM, BID
     Route: 048
  25. DUROGESIC [Suspect]
     Active Substance: FENTANYL
     Indication: PRODUCT USED FOR UNKNOWN INDICATION
     Dosage: 50 UG,QD
     Route: 048
  26. DIPYRONE [Suspect]
     Active Substance: DIPYRONE
     Indication: PRODUCT USED FOR UNKNOWN INDICATION
     Dosage: 30 DROP, TID
     Route: 048
  27. KALINOR (POTASSIUM BICARBONATE\POTASSIUM CITRATE) [Suspect]
     Active Substance: POTASSIUM BICARBONATE\POTASSIUM CITRATE
     Indication: PRODUCT USED FOR UNKNOWN INDICATION
     Dosage: UNK
     Route: 048
  28. KALINOR (POTASSIUM BICARBONATE\POTASSIUM CITRATE) [Suspect]
     Active Substance: POTASSIUM BICARBONATE\POTASSIUM CITRATE
     Dosage: 100 MG, QD (1-0-0-0)
     Route: 048
  29. MAGNESIUM VERLA (MAGNESIUM CITRATE (+) MAGNESIUM GLUTAMATE (+) MAGNESI [Suspect]
     Active Substance: MAGNESIUM
     Dosage: 2 DF, QD
     Route: 048
  30. SPIRONOLACTONE. [Suspect]
     Active Substance: SPIRONOLACTONE
     Dosage: 2 DOSAGE FORM (DF), QD
  31. FUROSEMIDE. [Interacting]
     Active Substance: FUROSEMIDE
     Dosage: 40 MG, Q6H
     Route: 048
  32. RAPAMUNE [Suspect]
     Active Substance: SIROLIMUS
     Dosage: UNK UNK,UNK
     Route: 048
  33. SPIRIVA [Suspect]
     Active Substance: TIOTROPIUM BROMIDE MONOHYDRATE
     Dosage: 18 UG, BID
     Route: 055
  34. FLUTICASONE PROPIONATE (+) SALMETEROL XINAFOATE [Suspect]
     Active Substance: FLUTICASONE PROPIONATE\SALMETEROL XINAFOATE
     Indication: PRODUCT USED FOR UNKNOWN INDICATION
     Dosage: 2 DF, QD (50/500 UG) (1-0-1-0)
     Route: 055
  35. NOVALGIN (ACETAMINOPHEN (+) CAFFEINE (+) PROPYPHENAZONE) [Suspect]
     Active Substance: ACETAMINOPHEN\CAFFEINE\PROPYPHENAZONE
     Indication: PRODUCT USED FOR UNKNOWN INDICATION
     Dosage: 30 GTT DROPS, Q8H
     Route: 048
  36. ALUMINUM HYDROXIDE (+) MAGNESIUM HYDROXIDE [Suspect]
     Active Substance: ALUMINUM HYDROXIDE\MAGNESIUM HYDROXIDE
     Indication: PRODUCT USED FOR UNKNOWN INDICATION
     Dosage: 200 DOSAGE FORM, QD
     Route: 048
  37. PANTOPRAZOLE SODIUM. [Suspect]
     Active Substance: PANTOPRAZOLE SODIUM
     Indication: PRODUCT USED FOR UNKNOWN INDICATION
     Dosage: 40 MG, QD
     Route: 048
  38. AMBROXOL [Suspect]
     Active Substance: AMBROXOL
     Indication: PRODUCT USED FOR UNKNOWN INDICATION
     Dosage: 30 DROP, PRN
     Route: 048
  39. LACTULOSE. [Interacting]
     Active Substance: LACTULOSE
     Dosage: 1 DF, QD
     Route: 048
  40. FUROSEMIDE. [Interacting]
     Active Substance: FUROSEMIDE
     Indication: PRODUCT USED FOR UNKNOWN INDICATION
     Dosage: 160 MG, QD
     Route: 048
  41. ACETAMINOPHEN. [Suspect]
     Active Substance: ACETAMINOPHEN
     Dosage: 30 GTT, TID
     Route: 048
  42. SPIRIVA [Suspect]
     Active Substance: TIOTROPIUM BROMIDE MONOHYDRATE
     Indication: PRODUCT USED FOR UNKNOWN INDICATION
     Dosage: 18 UG, BID (1-0-1-0)
     Route: 055
  43. PENTAZOCINE HYDROCHLORIDE [Suspect]
     Active Substance: PENTAZOCINE HYDROCHLORIDE
     Dosage: 90 DF, QD
     Route: 048
  44. LEVOPAR PLUS [Suspect]
     Active Substance: BENSERAZIDE\LEVODOPA
     Dosage: 1 DF, QD
     Route: 055
  45. URSOFALK [Suspect]
     Active Substance: URSODIOL
     Indication: PRODUCT USED FOR UNKNOWN INDICATION
     Dosage: 500 MG, BID (1-0-1-0)
     Route: 048
  46. URSOFALK [Suspect]
     Active Substance: URSODIOL
     Dosage: 1000 MG (500 MG, BID)
     Route: 048
  47. MAGNESIUM CITRATE (+) MAGNESIUM OXIDE (+) POTASSIUM CITRATE (+) PYRIDO [Suspect]
     Active Substance: MAGNESIUM CITRATE\MAGNESIUM OXIDE\POTASSIUM CITRATE\PYRIDOXINE HYDROCHLORIDE
     Dosage: 2 DOSAGE FORM, QD
     Route: 048
  48. VIANI [Suspect]
     Active Substance: FLUTICASONE PROPIONATE\SALMETEROL XINAFOATE
     Dosage: 1 DF, QD
     Route: 055
  49. TIOTROPIUM BROMIDE [Suspect]
     Active Substance: TIOTROPIUM BROMIDE
     Indication: PRODUCT USED FOR UNKNOWN INDICATION
     Dosage: 18 UG, BID
     Route: 055
  50. FENTANYL. [Suspect]
     Active Substance: FENTANYL
     Indication: PRODUCT USED FOR UNKNOWN INDICATION
     Dosage: 50 UG, QD
     Route: 048
  51. BENSERAZIDE HYDROCHLORIDE [Suspect]
     Active Substance: BENSERAZIDE HYDROCHLORIDE
     Indication: PRODUCT USED FOR UNKNOWN INDICATION
     Dosage: 100 MG, UNK (1-0-2.5-0) (100 MG)
     Route: 048
  52. EZETROL [Suspect]
     Active Substance: EZETIMIBE
     Indication: PRODUCT USED FOR UNKNOWN INDICATION
     Dosage: 10 MG, QD (1-0-0-0)
     Route: 048
  53. MUCOSOLVAN [Interacting]
     Active Substance: AMBROXOL HYDROCHLORIDE
     Dosage: UNK (REQUIREMENT, AS NECESSARY) (UNK [30 DROP (1/12 MILILITER) UNK)
     Route: 048
  54. SPIRONOLACTONE. [Suspect]
     Active Substance: SPIRONOLACTONE
     Dosage: 100 MG, BID
     Route: 048
  55. SPIRONOLACTONE. [Suspect]
     Active Substance: SPIRONOLACTONE
     Dosage: 100 MG, QD
     Route: 048
  56. VIGANTOLETTEN [Suspect]
     Active Substance: CHOLECALCIFEROL
     Dosage: 100 UNK, QD
     Route: 048
  57. FLUTICASONE PROPIONATE (+) SALMETEROL XINAFOATE [Suspect]
     Active Substance: FLUTICASONE PROPIONATE\SALMETEROL XINAFOATE
     Dosage: 2 UNK, UNK
     Route: 055
  58. MAGNESIUM CITRATE (+) MAGNESIUM OXIDE (+) POTASSIUM CITRATE (+) PYRIDO [Suspect]
     Active Substance: MAGNESIUM CITRATE\MAGNESIUM OXIDE\POTASSIUM CITRATE\PYRIDOXINE HYDROCHLORIDE
     Indication: PRODUCT USED FOR UNKNOWN INDICATION
     Dosage: 1 DOSAGE FORM, QD
     Route: 048
  59. MAGNESIUM CITRATE (+) MAGNESIUM OXIDE (+) POTASSIUM CITRATE (+) PYRIDO [Suspect]
     Active Substance: MAGNESIUM CITRATE\MAGNESIUM OXIDE\POTASSIUM CITRATE\PYRIDOXINE HYDROCHLORIDE
     Dosage: 2 DOSAGE FORM, QD
     Route: 048
  60. MAGNESIUM CITRATE (+) MAGNESIUM OXIDE (+) POTASSIUM CITRATE (+) PYRIDO [Suspect]
     Active Substance: MAGNESIUM CITRATE\MAGNESIUM OXIDE\POTASSIUM CITRATE\PYRIDOXINE HYDROCHLORIDE
     Dosage: 2 DOSAGE FORM, QD
     Route: 048
  61. ACETAMINOPHEN (+) PENTAZOCINE HYDROCHLORIDE [Suspect]
     Active Substance: ACETAMINOPHEN\PENTAZOCINE HYDROCHLORIDE
     Dosage: 1 DOSAGE FORM, QD
     Route: 048
  62. PANTOZOL [Suspect]
     Active Substance: PANTOPRAZOLE SODIUM
     Indication: PRODUCT USED FOR UNKNOWN INDICATION
     Dosage: 40 MG, QD (1-0-0-0)
     Route: 048
  63. VIGANTOLETTEN [Suspect]
     Active Substance: CHOLECALCIFEROL
     Dosage: 100 IU, QD (1-0-0-0)
     Route: 048
  64. ACETAMINOPHEN. [Suspect]
     Active Substance: ACETAMINOPHEN
     Dosage: 1 DF, QD
     Route: 048
  65. RAPAMUNE [Suspect]
     Active Substance: SIROLIMUS
     Indication: PRODUCT USED FOR UNKNOWN INDICATION
     Dosage: 1 MG,QD, (1-0-0-0)
     Route: 048
  66. MAGNESIUM (UNSPECIFIED) [Suspect]
     Active Substance: MAGNESIUM
     Dosage: 2 DF, QD
     Route: 048
  67. MAGNESIUM CITRATE (+) MAGNESIUM OXIDE (+) POTASSIUM CITRATE (+) PYRIDO [Suspect]
     Active Substance: MAGNESIUM CITRATE\MAGNESIUM OXIDE\POTASSIUM CITRATE\PYRIDOXINE HYDROCHLORIDE
     Dosage: 2 DOSAGE FORM, QD
     Route: 048
  68. MAGNESIUM CITRATE (+) MAGNESIUM OXIDE (+) POTASSIUM CITRATE (+) PYRIDO [Suspect]
     Active Substance: MAGNESIUM CITRATE\MAGNESIUM OXIDE\POTASSIUM CITRATE\PYRIDOXINE HYDROCHLORIDE
     Dosage: UNK UNK, BID
     Route: 048
  69. SIROLIMUS. [Suspect]
     Active Substance: SIROLIMUS
     Indication: PRODUCT USED FOR UNKNOWN INDICATION
     Dosage: 1 MG, QD
     Route: 048
  70. IMUREK (AZATHIOPRINE) [Suspect]
     Active Substance: AZATHIOPRINE
     Indication: PRODUCT USED FOR UNKNOWN INDICATION
     Dosage: 50 MG, QD
     Route: 048
  71. LACTULOSE. [Interacting]
     Active Substance: LACTULOSE
     Dosage: 1 UNK, UNK
     Route: 048
  72. MAGNESIUM VERLA (MAGNESIUM CITRATE (+) MAGNESIUM GLUTAMATE (+) MAGNESI [Suspect]
     Active Substance: MAGNESIUM
     Dosage: 1 DF, QD
     Route: 048
  73. MAGNESIUM VERLA (MAGNESIUM CITRATE (+) MAGNESIUM GLUTAMATE (+) MAGNESI [Suspect]
     Active Substance: MAGNESIUM
     Dosage: 2 DF, QD
     Route: 048
  74. ACETAMINOPHEN. [Suspect]
     Active Substance: ACETAMINOPHEN
     Indication: PRODUCT USED FOR UNKNOWN INDICATION
     Dosage: 90 DF, QD
     Route: 048
  75. SPIRIVA [Suspect]
     Active Substance: TIOTROPIUM BROMIDE MONOHYDRATE
     Dosage: 36 MICROGRAM, QD
     Route: 055
  76. SPIRIVA [Suspect]
     Active Substance: TIOTROPIUM BROMIDE MONOHYDRATE
     Dosage: 2 DOSAGE FORM, QD
     Route: 055
  77. PENTAZOCINE HYDROCHLORIDE [Suspect]
     Active Substance: PENTAZOCINE HYDROCHLORIDE
     Indication: PRODUCT USED FOR UNKNOWN INDICATION
     Dosage: 30 GTT, TID
     Route: 048
  78. PENTAZOCINE HYDROCHLORIDE [Suspect]
     Active Substance: PENTAZOCINE HYDROCHLORIDE
     Dosage: 1 DF, QD
     Route: 048
  79. FLUTICASONE PROPIONATE (+) SALMETEROL XINAFOATE [Suspect]
     Active Substance: FLUTICASONE PROPIONATE\SALMETEROL XINAFOATE
     Dosage: 1 DF, QD
     Route: 055
  80. LEVOPAR PLUS [Suspect]
     Active Substance: BENSERAZIDE\LEVODOPA
     Indication: PRODUCT USED FOR UNKNOWN INDICATION
     Dosage: 100 MG, QD (1-0-2.5-0)
     Route: 048
  81. LEVOPAR PLUS [Suspect]
     Active Substance: BENSERAZIDE\LEVODOPA
     Dosage: 100 MG BID
     Route: 048
  82. MAGNESIUM CITRATE (+) MAGNESIUM OXIDE (+) POTASSIUM CITRATE (+) PYRIDO [Suspect]
     Active Substance: MAGNESIUM CITRATE\MAGNESIUM OXIDE\POTASSIUM CITRATE\PYRIDOXINE HYDROCHLORIDE
     Dosage: 2 UNK, QD
     Route: 048
  83. HYDROCHLOROTHIAZIDE. [Suspect]
     Active Substance: HYDROCHLOROTHIAZIDE
     Indication: PRODUCT USED FOR UNKNOWN INDICATION
     Dosage: 25 MG, QD
     Route: 048
  84. URSODIOL. [Suspect]
     Active Substance: URSODIOL
     Indication: PRODUCT USED FOR UNKNOWN INDICATION
     Dosage: 500 MG, BID
     Route: 048

REACTIONS (3)
  - Drug interaction [Unknown]
  - Product prescribing error [Unknown]
  - General physical health deterioration [Unknown]

NARRATIVE: CASE EVENT DATE: 20150916
